FAERS Safety Report 18652678 (Version 10)
Quarter: 2024Q4

REPORT INFORMATION
  Report Type: Report from Study
  Country: BR (occurrence: BR)
  Receive Date: 20201223
  Receipt Date: 20241114
  Transmission Date: 20250114
  Serious: Yes (Hospitalization, Other)
  Sender: NOVARTIS
  Company Number: NVSC2020BR338119

PATIENT
  Age: 58 Year
  Sex: Female

DRUGS (10)
  1. COSENTYX [Suspect]
     Active Substance: SECUKINUMAB
     Indication: Psoriasis
     Dosage: 300 MG
     Route: 065
     Dates: start: 20190702, end: 20201030
  2. COSENTYX [Suspect]
     Active Substance: SECUKINUMAB
     Dosage: 300 MG
     Route: 065
     Dates: end: 202012
  3. COSENTYX [Suspect]
     Active Substance: SECUKINUMAB
     Dosage: 300 MG
     Route: 065
     Dates: start: 202106
  4. COSENTYX [Suspect]
     Active Substance: SECUKINUMAB
     Dosage: 300 MG
     Route: 065
     Dates: start: 20210708
  5. COSENTYX [Suspect]
     Active Substance: SECUKINUMAB
     Dosage: UNK
     Route: 065
     Dates: start: 20220228
  6. COSENTYX [Suspect]
     Active Substance: SECUKINUMAB
     Dosage: 300 MG
     Route: 065
     Dates: start: 20221109
  7. COSENTYX [Suspect]
     Active Substance: SECUKINUMAB
     Dosage: UNK
     Route: 065
  8. CYCLOSPORINE [Suspect]
     Active Substance: CYCLOSPORINE
     Indication: Product used for unknown indication
     Dosage: 50 ML, QD
     Route: 065
  9. CYCLOSPORINE [Suspect]
     Active Substance: CYCLOSPORINE
     Dosage: UNK, QOD (EVERY OTHER DAY)
     Route: 065
     Dates: end: 20230107
  10. LOSARTAN [Suspect]
     Active Substance: LOSARTAN
     Indication: Hypertension
     Dosage: UNK, BID (IN THE MORNING AND AT NIGHT)
     Route: 065

REACTIONS (42)
  - Ill-defined disorder [Recovered/Resolved with Sequelae]
  - Hypertension [Recovered/Resolved]
  - Pelvic fracture [Unknown]
  - Pneumonitis [Unknown]
  - Spinal fracture [Unknown]
  - Pain [Unknown]
  - Gait inability [Unknown]
  - Peripheral swelling [Recovered/Resolved]
  - Peripheral swelling [Not Recovered/Not Resolved]
  - Joint swelling [Not Recovered/Not Resolved]
  - Wrist fracture [Unknown]
  - Malaise [Unknown]
  - Pyrexia [Unknown]
  - Pain in extremity [Unknown]
  - Rib fracture [Recovering/Resolving]
  - Joint dislocation [Recovering/Resolving]
  - Hand fracture [Recovering/Resolving]
  - Stress [Unknown]
  - Psoriasis [Not Recovered/Not Resolved]
  - Nail disorder [Not Recovered/Not Resolved]
  - Illness [Recovering/Resolving]
  - Erythema [Not Recovered/Not Resolved]
  - Sensitive skin [Unknown]
  - Pruritus [Not Recovered/Not Resolved]
  - Injury [Not Recovered/Not Resolved]
  - Ear injury [Unknown]
  - Wound [Unknown]
  - Skin discolouration [Unknown]
  - Dry skin [Not Recovered/Not Resolved]
  - Joint injury [Not Recovered/Not Resolved]
  - Skin injury [Not Recovered/Not Resolved]
  - Skin exfoliation [Not Recovered/Not Resolved]
  - Skin lesion [Recovering/Resolving]
  - Rash macular [Unknown]
  - Drug ineffective [Not Recovered/Not Resolved]
  - Herpes zoster [Recovering/Resolving]
  - Blister [Recovering/Resolving]
  - Burning sensation [Recovering/Resolving]
  - Localised infection [Recovered/Resolved]
  - Osteitis [Unknown]
  - General physical health deterioration [Unknown]
  - Adverse drug reaction [Unknown]

NARRATIVE: CASE EVENT DATE: 20201110
